FAERS Safety Report 25178066 (Version 2)
Quarter: 2025Q2

REPORT INFORMATION
  Report Type: Spontaneous
  Country: CA (occurrence: CA)
  Receive Date: 20250409
  Receipt Date: 20250415
  Transmission Date: 20250717
  Serious: Yes (Death, Other)
  Sender: KARYOPHARM THERAPEUTICS
  Company Number: CA-KARYOPHARM-2025KPT100044

PATIENT

DRUGS (3)
  1. SELINEXOR [Suspect]
     Active Substance: SELINEXOR
     Indication: Plasma cell myeloma
     Route: 048
     Dates: start: 20250312, end: 202503
  2. DEXAMETHASONE [Concomitant]
     Active Substance: DEXAMETHASONE
  3. POMALIDOMIDE [Concomitant]
     Active Substance: POMALIDOMIDE

REACTIONS (9)
  - Cardiac disorder [Fatal]
  - Renal disorder [Fatal]
  - Dyspnoea [Unknown]
  - Arthralgia [Unknown]
  - Respiratory tract congestion [Unknown]
  - Back pain [Unknown]
  - Fatigue [Recovering/Resolving]
  - Underdose [Unknown]
  - Off label use [Unknown]

NARRATIVE: CASE EVENT DATE: 20250101
